FAERS Safety Report 6144358-4 (Version None)
Quarter: 2009Q2

REPORT INFORMATION
  Report Type: 
  Country: None (occurrence: None)
  Receive Date: 20090401
  Receipt Date: 20090318
  Transmission Date: 20091009
  Serious: Yes (Hospitalization)
  Sender: FDA-Public Use
  Company Number: 8044275

PATIENT
  Age: 25 Year
  Sex: Female

DRUGS (5)
  1. KEPPRA [Suspect]
     Indication: EPILEPSY
     Dosage: 1500 MG 2/D
  2. KEPPRA [Suspect]
     Indication: EPILEPSY
     Dosage: 1000 MG 2/D
  3. LAMOTRIGINE [Concomitant]
  4. VALPROATE SODIUM [Concomitant]
  5. FRISIUM [Concomitant]

REACTIONS (5)
  - CONDITION AGGRAVATED [None]
  - FALL [None]
  - HAEMORRHAGE [None]
  - ILL-DEFINED DISORDER [None]
  - MUSCLE SPASTICITY [None]
